FAERS Safety Report 25427117 (Version 2)
Quarter: 2025Q3

REPORT INFORMATION
  Report Type: Spontaneous
  Country: US (occurrence: US)
  Receive Date: 20250612
  Receipt Date: 20250701
  Transmission Date: 20251020
  Serious: Yes (Hospitalization, Disabling, Other)
  Sender: MERCK SHARP & DOHME LLC
  Company Number: US-009507513-2294235

PATIENT
  Age: 64 Year
  Sex: Female
  Weight: 43.9 kg

DRUGS (18)
  1. KEYTRUDA [Suspect]
     Active Substance: PEMBROLIZUMAB
     Indication: Triple negative breast cancer
     Dosage: EVERY 6 WEEKS
     Route: 042
     Dates: start: 20240625, end: 20241029
  2. PRISTIQ EXTENDED-RELEASE [Concomitant]
     Active Substance: DESVENLAFAXINE SUCCINATE
  3. CREON [Concomitant]
     Active Substance: PANCRELIPASE AMYLASE\PANCRELIPASE LIPASE\PANCRELIPASE PROTEASE
  4. LOPERAMIDE [Concomitant]
     Active Substance: LOPERAMIDE
  5. HYDROCORTISONE [Concomitant]
     Active Substance: HYDROCORTISONE
  6. SULFAMETHOXAZOLE\TRIMETHOPRIM [Concomitant]
     Active Substance: SULFAMETHOXAZOLE\TRIMETHOPRIM
  7. TRAZODONE [Concomitant]
     Active Substance: TRAZODONE HYDROCHLORIDE
  8. SEROQUEL XR [Concomitant]
     Active Substance: QUETIAPINE FUMARATE
  9. ZYPREXA [Concomitant]
     Active Substance: OLANZAPINE
     Dates: start: 20240625, end: 20240806
  10. ZOFRAN [Concomitant]
     Active Substance: ONDANSETRON HYDROCHLORIDE
     Dates: start: 20240625
  11. DECADRON [Concomitant]
     Active Substance: DEXAMETHASONE
     Dates: start: 20240625, end: 20240806
  12. NEULASTA [Concomitant]
     Active Substance: PEGFILGRASTIM
     Dates: start: 20240625, end: 20240806
  13. ADRIAMYCIN [Suspect]
     Active Substance: DOXORUBICIN HYDROCHLORIDE
     Indication: Triple negative breast cancer
     Dates: start: 20240625, end: 20240806
  14. CYTOXAN [Suspect]
     Active Substance: CYCLOPHOSPHAMIDE
     Indication: Triple negative breast cancer
     Dates: start: 20240625, end: 20240806
  15. TAXOL [Suspect]
     Active Substance: PACLITAXEL
     Dates: start: 20240820, end: 20241029
  16. CARBOPLATIN [Suspect]
     Active Substance: CARBOPLATIN
     Indication: Triple negative breast cancer
     Dates: start: 20240820, end: 20241029
  17. EVEKEO [Concomitant]
     Active Substance: AMPHETAMINE SULFATE
  18. VITAMINS [Concomitant]
     Active Substance: VITAMINS

REACTIONS (28)
  - Diverticulitis [Recovered/Resolved with Sequelae]
  - Decreased appetite [Unknown]
  - Therapy cessation [Unknown]
  - Immune-mediated pancreatitis [Recovering/Resolving]
  - Malabsorption [Recovering/Resolving]
  - Diabetes mellitus [Recovering/Resolving]
  - Immune-mediated adrenal insufficiency [Recovering/Resolving]
  - Urinary tract infection [Unknown]
  - Hospitalisation [Unknown]
  - Rash [Unknown]
  - Chills [Unknown]
  - Escherichia infection [Unknown]
  - Hypokalaemia [Unknown]
  - Synovial cyst [Unknown]
  - Hyponatraemia [Recovering/Resolving]
  - Sarcopenia [Unknown]
  - Vitamin A deficiency [Unknown]
  - Hypervitaminosis B12 [Unknown]
  - Application site cellulitis [Unknown]
  - Anaemia [Unknown]
  - Adult failure to thrive [Unknown]
  - Drug hypersensitivity [Unknown]
  - Hypoglycaemia [Unknown]
  - Hyperglycaemia [Unknown]
  - Weight decreased [Unknown]
  - Malnutrition [Unknown]
  - Malnutrition [Unknown]
  - Cystitis [Unknown]

NARRATIVE: CASE EVENT DATE: 20240601
